FAERS Safety Report 9999565 (Version 9)
Quarter: 2014Q3

REPORT INFORMATION
  Report Type: Spontaneous
  Country: US (occurrence: None)
  Receive Date: 20140310
  Receipt Date: 20140801
  Transmission Date: 20150326
  Serious: Yes (Hospitalization, Other)
  Sender: FDA-Public Use
  Company Number: 2014P1001709

PATIENT
  Age: 48 Year
  Sex: Female
  Weight: 52.2 kg

DRUGS (28)
  1. SPORANOX [Concomitant]
     Active Substance: ITRACONAZOLE\SODIUM CHLORIDE
  2. FYCOMPA [Concomitant]
     Active Substance: PERAMPANEL
  3. SENNA [Concomitant]
     Active Substance: SENNA LEAF\SENNOSIDES\SENNOSIDES A AND B
  4. BENADRYL (DIPHENHYDRAMINE) [Concomitant]
  5. ZOSYN [Suspect]
     Active Substance: PIPERACILLIN SODIUM\TAZOBACTAM SODIUM
     Route: 042
  6. MULTIVITAMIN [Concomitant]
     Active Substance: VITAMINS
  7. BENADRYL [Suspect]
     Active Substance: DIPHENHYDRAMINE HYDROCHLORIDE
     Route: 042
  8. VOLTAREN (DICLOFENAC) [Concomitant]
  9. ACTIMMUNE [Suspect]
     Active Substance: INTERFERON GAMMA-1B
     Indication: CHRONIC GRANULOMATOUS DISEASE
     Route: 058
     Dates: start: 1988, end: 201401
  10. VANCOMYCIN [Suspect]
     Active Substance: VANCOMYCIN
     Route: 042
  11. KEPPRA [Concomitant]
     Active Substance: LEVETIRACETAM
  12. MORPHINE SULFATE (MSIR) [Concomitant]
  13. OMEPRAZOLE. [Concomitant]
     Active Substance: OMEPRAZOLE
  14. ONFI [Concomitant]
     Active Substance: CLOBAZAM
  15. ATIVAN [Concomitant]
     Active Substance: LORAZEPAM
  16. FLEXERIL (CYCLOBENZAPRINE) [Concomitant]
  17. PROZAC (FLUOXETINE) [Concomitant]
  18. LAMICTAL [Concomitant]
     Active Substance: LAMOTRIGINE
  19. PRISTIQ EXTENDED RELEASE [Concomitant]
     Active Substance: DESVENLAFAXINE SUCCINATE
  20. ZANTAC [Concomitant]
     Active Substance: RANITIDINE HYDROCHLORIDE
  21. LIDO-2%/MAALOX LIQUID [Concomitant]
  22. EPIPEN [Concomitant]
     Active Substance: EPINEPHRINE
  23. BACTRIM [Suspect]
     Active Substance: SULFAMETHOXAZOLE\TRIMETHOPRIM
  24. AMBIEN [Concomitant]
     Active Substance: ZOLPIDEM TARTRATE
  25. VOLTAREN [Concomitant]
     Active Substance: DICLOFENAC SODIUM
  26. DOCUSATE SODIUM. [Concomitant]
     Active Substance: DOCUSATE SODIUM
  27. NORCO (HYDROCODONE-ACETAINOPHEN) [Concomitant]
  28. LISINOPRIL. [Concomitant]
     Active Substance: LISINOPRIL

REACTIONS (46)
  - Fungal oesophagitis [None]
  - White blood cell count decreased [None]
  - Pain [None]
  - Pleural effusion [None]
  - Disorientation [None]
  - Hospitalisation [None]
  - Fall [None]
  - Anaemia [None]
  - Convulsion [None]
  - Weight decreased [None]
  - Fatigue [None]
  - Dizziness [None]
  - Lymphadenopathy [None]
  - C-reactive protein increased [None]
  - Hypotension [None]
  - Diarrhoea [None]
  - Unwanted awareness during anaesthesia [None]
  - Eye operation [None]
  - Pruritus [None]
  - Red man syndrome [None]
  - Neutrophil count decreased [None]
  - Anaesthetic complication [None]
  - Productive cough [None]
  - Chest pain [None]
  - Transferrin decreased [None]
  - Wound infection [None]
  - Pyrexia [None]
  - Joint injury [None]
  - Neck pain [None]
  - Lung consolidation [None]
  - Lymph node pain [None]
  - Abscess [None]
  - Strabismus [None]
  - Dyspnoea exertional [None]
  - Hyperaesthesia [None]
  - Bursitis [None]
  - Dysphagia [None]
  - Decreased appetite [None]
  - Treatment noncompliance [None]
  - Iron deficiency anaemia [None]
  - Cellulitis [None]
  - Arthralgia [None]
  - Subcutaneous abscess [None]
  - Cervical spinal stenosis [None]
  - Radiculopathy [None]
  - Procedural pain [None]

NARRATIVE: CASE EVENT DATE: 1995
